FAERS Safety Report 7362626-5 (Version None)
Quarter: 2011Q1

REPORT INFORMATION
  Report Type: 
  Country: None (occurrence: None)
  Receive Date: 20110320
  Receipt Date: 20100908
  Transmission Date: 20110831
  Serious: Yes (Other)
  Sender: FDA-Public Use
  Company Number: US-BAYER-201015460NA

PATIENT
  Sex: Female
  Weight: 95.238 kg

DRUGS (13)
  1. YASMIN [Suspect]
     Indication: PRODUCT USED FOR UNKNOWN INDICATION
     Dosage: UNK
     Route: 048
     Dates: start: 20050101, end: 20070101
  2. CONCERTA [Concomitant]
     Dosage: 54 MG, QD
     Dates: start: 20070101
  3. LEVOTHYROXINE [Concomitant]
     Indication: THYROID DISORDER
     Dosage: 0.125 MG, QD
     Dates: start: 20070101
  4. ZOLOFT [Concomitant]
     Dosage: 100 MG, QD
  5. LIPITOR [Concomitant]
     Indication: BLOOD CHOLESTEROL INCREASED
     Dosage: 10 MG, QD
     Dates: start: 20040101
  6. METFORMIN [Concomitant]
     Indication: DIABETES MELLITUS
     Dosage: 1000 MG, BID
     Dates: start: 20040101
  7. D3-VICOTRAT [Concomitant]
     Dosage: 1000 MG, QD
  8. TRAZODONE [Concomitant]
     Dosage: 2 MG, QD
  9. UNCODEABLE ^UNCLASSIFIABLE^ [Concomitant]
     Dosage: UNK UNK, QD
  10. ABILIFY [Concomitant]
     Dosage: 5 MG, QD
  11. WELLBUTRIN XL [Concomitant]
     Dosage: 300 MG, QD
  12. EFFEXOR XR [Concomitant]
     Dosage: 150 MG, QD
     Dates: start: 20070101
  13. FISH OIL [Concomitant]
     Dosage: 1000 MG, QD

REACTIONS (4)
  - PAIN [None]
  - CHOLELITHIASIS [None]
  - CHOLECYSTITIS CHRONIC [None]
  - GALLBLADDER CHOLESTEROLOSIS [None]
